FAERS Safety Report 7777571-0 (Version None)
Quarter: 2011Q3

REPORT INFORMATION
  Report Type: 
  Country: None (occurrence: None)
  Receive Date: 20110922
  Receipt Date: 20110912
  Transmission Date: 20111222
  Serious: Yes (Hospitalization, Other)
  Sender: FDA-Public Use
  Company Number: 2010S1000365

PATIENT
  Age: 72 Year
  Sex: Male
  Weight: 72.1219 kg

DRUGS (7)
  1. ASPIRIN [Concomitant]
  2. SIMVASTATIN [Concomitant]
  3. SODIUM PHOSPHATE MONOBASIC MONOHYDRATE AND NAPO4 DIBASIC ANHYDROUS [Suspect]
     Indication: BOWEL PREPARATION
     Dosage: PO
     Route: 048
     Dates: start: 20080601, end: 20080601
  4. FENOFIBRATE MSD [Concomitant]
  5. TRIAMTERENE AND HYDROCHLOROTHIAZIDE [Concomitant]
  6. DOXAZOSIN MESYLATE [Concomitant]
  7. OMEPRAZOLE [Concomitant]

REACTIONS (6)
  - RENAL FAILURE ACUTE [None]
  - VIRAL INFECTION [None]
  - NORMOCHROMIC NORMOCYTIC ANAEMIA [None]
  - HYPOVOLAEMIA [None]
  - PNEUMONIA [None]
  - HYPERTENSION [None]
